FAERS Safety Report 18590059 (Version 1)
Quarter: 2020Q4

REPORT INFORMATION
  Report Type: Spontaneous
  Country: US (occurrence: US)
  Receive Date: 20201208
  Receipt Date: 20201208
  Transmission Date: 20210114
  Serious: Yes (Hospitalization)
  Sender: FDA-Public Use
  Company Number: None

PATIENT
  Age: 88 Year
  Sex: Male

DRUGS (2)
  1. IV-BAMLANIVIMAB [Suspect]
     Active Substance: BAMLANIVIMAB
     Indication: COVID-19
     Dosage: ?          OTHER FREQUENCY:ONCE;?
     Route: 042
     Dates: start: 20201207, end: 20201207
  2. BAMLANIVIMAB. [Concomitant]
     Active Substance: BAMLANIVIMAB
     Dates: start: 20201207, end: 20201207

REACTIONS (7)
  - Dyspnoea [None]
  - Malaise [None]
  - Hypotension [None]
  - Oxygen saturation decreased [None]
  - Infusion related reaction [None]
  - Chills [None]
  - Hypoxia [None]

NARRATIVE: CASE EVENT DATE: 20201207
